FAERS Safety Report 20552310 (Version 4)
Quarter: 2022Q4

REPORT INFORMATION
  Report Type: Report from Study
  Country: CO (occurrence: CO)
  Receive Date: 20220304
  Receipt Date: 20221119
  Transmission Date: 20230113
  Serious: Yes (Hospitalization)
  Sender: FDA-Public Use
  Company Number: CO-NOVARTISPH-NVSC2022CO049384

PATIENT
  Sex: Male

DRUGS (1)
  1. ELTROMBOPAG OLAMINE [Suspect]
     Active Substance: ELTROMBOPAG OLAMINE
     Indication: Immune thrombocytopenia
     Dosage: 25 MG, QD
     Route: 048

REACTIONS (6)
  - Renal disorder [Unknown]
  - Diarrhoea [Unknown]
  - Malaise [Unknown]
  - Malnutrition [Unknown]
  - Protein total abnormal [Unknown]
  - Eating disorder [Unknown]
